FAERS Safety Report 12095553 (Version 2)
Quarter: 2016Q2

REPORT INFORMATION
  Report Type: Spontaneous
  Country: US (occurrence: US)
  Receive Date: 20160219
  Receipt Date: 20160510
  Transmission Date: 20160815
  Serious: Yes (Other)
  Sender: FDA-Public Use
  Company Number: US-EGALET US INC-US-2016EGA000114

PATIENT

DRUGS (3)
  1. DULOXETINE. [Concomitant]
     Active Substance: DULOXETINE
     Indication: DEPRESSION
     Dosage: 50 MG, QD
     Route: 048
     Dates: start: 201504, end: 201604
  2. DULOXETINE. [Concomitant]
     Active Substance: DULOXETINE
     Indication: PAIN
  3. SPRIX [Suspect]
     Active Substance: KETOROLAC TROMETHAMINE
     Indication: ARTHRALGIA
     Dosage: UNK
     Route: 045

REACTIONS (7)
  - Nausea [Unknown]
  - Diaphragmatic spasm [Unknown]
  - Abdominal pain upper [Unknown]
  - Hiccups [Unknown]
  - Hypersensitivity [Unknown]
  - Vomiting [Recovered/Resolved]
  - Muscle twitching [Unknown]
